FAERS Safety Report 6506315-5 (Version None)
Quarter: 2009Q4

REPORT INFORMATION
  Report Type: 
  Country: None (occurrence: None)
  Receive Date: 20091218
  Receipt Date: 20091211
  Transmission Date: 20100525
  Serious: Yes (Other)
  Sender: FDA-Public Use
  Company Number: US-AMGEN-KDL356913

PATIENT
  Sex: Female
  Weight: 73.5 kg

DRUGS (10)
  1. PROCRIT [Suspect]
     Indication: DRUG USE FOR UNKNOWN INDICATION
     Route: 058
     Dates: start: 20081218, end: 20090703
  2. EXJADE [Concomitant]
  3. PREMARIN [Concomitant]
  4. INTERFERON [Concomitant]
     Dates: start: 20081101, end: 20090522
  5. RIBAVIRIN [Concomitant]
     Dates: start: 20081101
  6. ALLEGRA [Concomitant]
  7. COMBIVENT [Concomitant]
  8. UNSPECIFIED MEDICATION [Concomitant]
  9. PEGINTERFERON ALFA-2A [Concomitant]
     Dates: start: 20091204
  10. FILGRASTIM [Concomitant]

REACTIONS (11)
  - ANTI-ERYTHROPOIETIN ANTIBODY POSITIVE [None]
  - APLASIA PURE RED CELL [None]
  - BLOOD ERYTHROPOIETIN DECREASED [None]
  - BONE MARROW FAILURE [None]
  - HAEMOCHROMATOSIS [None]
  - HEPATIC CIRRHOSIS [None]
  - HEPATITIS C [None]
  - MYELODYSPLASTIC SYNDROME [None]
  - NEUTRALISING ANTIBODIES POSITIVE [None]
  - PANCYTOPENIA [None]
  - PAROXYSMAL NOCTURNAL HAEMOGLOBINURIA [None]
